FAERS Safety Report 4631549-4 (Version None)
Quarter: 2005Q2

REPORT INFORMATION
  Report Type: 
  Country: None (occurrence: None)
  Receive Date: 20050407
  Receipt Date: 20050330
  Transmission Date: 20051028
  Serious: Yes (Hospitalization)
  Sender: FDA-Public Use
  Company Number: 2005052559

PATIENT
  Age: 70 Year
  Sex: Female

DRUGS (3)
  1. PRAZOSIN HCL [Suspect]
     Indication: ILL-DEFINED DISORDER
     Dosage: 5 MG (5 MG, QD), ORAL
     Route: 048
     Dates: start: 20040815, end: 20050310
  2. ALDACTAZINE (SPIRONOLACTONE, ALTIZIDE) [Suspect]
     Indication: ILL-DEFINED DISORDER
     Dosage: 1 DOSE FORM (QD), ORAL
     Route: 048
     Dates: start: 20040815, end: 20050310
  3. ACETYLSALICYLIC ACID SRT [Concomitant]
     Indication: ILL-DEFINED DISORDER
     Dosage: 1 DOSE FORM (QD), ORAL
     Route: 048
     Dates: start: 20040815, end: 20050310

REACTIONS (1)
  - INTERSTITIAL LUNG DISEASE [None]
